FAERS Safety Report 6725944 (Version 2)
Quarter: 2013Q2

REPORT INFORMATION
  Report Type: Spontaneous
  Country: US (occurrence: None)
  Receive Date: 20080601
  Receipt Date: 20120531
  Transmission Date: 20140414
  Serious: Yes (Other)
  Sender: FDA-Public Use
  Company Number: US200801004681

PATIENT
  Age: 48 Year
  Sex: Female

DRUGS (4)
  1. BYETTA [Suspect]
     Indication: TYPE 2 DIABETES MELLITUS
     Dosage: 10 UG, SUBCUTANEOUS
     Route: 058
  2. SYMLINPEN (PRAMLINTIDE ACETATE) [Concomitant]
  3. HUMALOG (INSULIN LISPRO) [Concomitant]
  4. LANTUS (INSULIN GLARGINE) [Concomitant]

REACTIONS (5)
  - BLOOD GLUCOSE INCREASED [None]
  - Fluid retention [None]
  - Swelling face [None]
  - Eyelid oedema [None]
  - Glycosylated haemoglobin increased [None]
